FAERS Safety Report 7281383-4 (Version None)
Quarter: 2011Q1

REPORT INFORMATION
  Report Type: 
  Country: None (occurrence: None)
  Receive Date: 20110208
  Receipt Date: 20110128
  Transmission Date: 20110831
  Serious: Yes (Death, Hospitalization)
  Sender: FDA-Public Use
  Company Number: US-BAXTER-2011BH000988

PATIENT
  Sex: Female

DRUGS (1)
  1. DIANEAL [Suspect]
     Indication: PERITONEAL DIALYSIS
     Route: 033
     Dates: start: 20081101, end: 20110128

REACTIONS (4)
  - MALAISE [None]
  - RENAL FAILURE [None]
  - BONE NEOPLASM MALIGNANT [None]
  - BREAST CANCER METASTATIC [None]
